FAERS Safety Report 7640502 (Version 8)
Quarter: 2015Q1

REPORT INFORMATION
  Report Type: Spontaneous
  Country: US (occurrence: US)
  Receive Date: 20101026
  Receipt Date: 20150226
  Transmission Date: 20150721
  Serious: Yes (Life-Threatening, Hospitalization, Disabling, Other)
  Sender: FDA-Public Use
  Company Number: US-MERCK-1010USA01868

PATIENT
  Sex: Female
  Weight: 66.67 kg

DRUGS (5)
  1. CITRACAL [Concomitant]
     Active Substance: CALCIUM CITRATE
     Dosage: ONE, QD
     Dates: start: 1995
  2. FOSAMAX [Suspect]
     Active Substance: ALENDRONATE SODIUM
     Indication: OSTEOPOROSIS
     Dosage: 70 MG, QW
     Route: 048
     Dates: start: 200610, end: 201004
  3. ALENDRONATE SODIUM. [Suspect]
     Active Substance: ALENDRONATE SODIUM
     Indication: OSTEOPOROSIS
     Dosage: 70 MG, UNK
     Route: 048
     Dates: start: 20080507, end: 201004
  4. CENTRUM SILVER [Concomitant]
     Active Substance: VITAMINS
     Dosage: ONE, QD
     Dates: start: 1995
  5. VITAMIN D [Concomitant]
     Active Substance: CHOLECALCIFEROL
     Dosage: 1000 IU, QD
     Dates: start: 1995

REACTIONS (26)
  - Sinusitis [Unknown]
  - Nausea [Unknown]
  - Hypotension [Recovering/Resolving]
  - Female sterilisation [Unknown]
  - Neck pain [Unknown]
  - Dizziness [Unknown]
  - Intramedullary rod insertion [Unknown]
  - Femur fracture [Recovering/Resolving]
  - Arthropod bite [Unknown]
  - Hepatic cirrhosis [Unknown]
  - Transient ischaemic attack [Unknown]
  - Constipation [Unknown]
  - Arthralgia [Unknown]
  - Drug ineffective [Unknown]
  - Adverse event [Unknown]
  - Arthritis [Unknown]
  - Transient ischaemic attack [Unknown]
  - Cataract nuclear [Unknown]
  - Gastrooesophageal reflux disease [Unknown]
  - Bacterial infection [Unknown]
  - Periodontal disease [Unknown]
  - Insomnia [Unknown]
  - Upper respiratory tract infection [Unknown]
  - Bunion operation [Unknown]
  - Urinary tract infection enterococcal [Unknown]
  - Headache [Unknown]

NARRATIVE: CASE EVENT DATE: 2006
